FAERS Safety Report 24175478 (Version 1)
Quarter: 2024Q3

REPORT INFORMATION
  Report Type: Spontaneous
  Country: US (occurrence: US)
  Receive Date: 20240805
  Receipt Date: 20240805
  Transmission Date: 20241017
  Serious: No
  Sender: EVOKE PHARMA
  Company Number: US-EVOKE PHARMA, INC.-2023EVO000134

PATIENT

DRUGS (1)
  1. GIMOTI [Suspect]
     Active Substance: METOCLOPRAMIDE HYDROCHLORIDE
     Indication: Product used for unknown indication
     Dosage: 15 MILLIGRAM, :3 TIMES A DAY, 30 MINS BEFORE EACH MEAL
     Route: 045
     Dates: start: 202307, end: 20230804

REACTIONS (4)
  - Malaise [Unknown]
  - Vomiting [Unknown]
  - Abdominal pain upper [Unknown]
  - Nausea [Unknown]

NARRATIVE: CASE EVENT DATE: 20230701
